FAERS Safety Report 18299075 (Version 1)
Quarter: 2020Q3

REPORT INFORMATION
  Report Type: Spontaneous
  Country: CA (occurrence: CA)
  Receive Date: 20200923
  Receipt Date: 20200923
  Transmission Date: 20201103
  Serious: Yes (Life-Threatening, Hospitalization)
  Sender: FDA-Public Use
  Company Number: CA-TEVA-2020-CA-1830237

PATIENT
  Age: 9 Year
  Sex: Female
  Weight: 34 kg

DRUGS (7)
  1. SEPTRA [Concomitant]
     Active Substance: SULFAMETHOXAZOLE\TRIMETHOPRIM
  2. POLYETHYLENE GLYCOL [Concomitant]
     Active Substance: POLYETHYLENE GLYCOLS
  3. EMEND [Concomitant]
     Active Substance: APREPITANT
  4. CISPLATIN INJECTION [Suspect]
     Active Substance: CISPLATIN
     Route: 042
  5. VINCRISTINE SULFATE. [Concomitant]
     Active Substance: VINCRISTINE SULFATE
  6. ETOPOSIDE. [Suspect]
     Active Substance: ETOPOSIDE
     Indication: PINEALOBLASTOMA
     Dosage: 88 MILLIGRAM DAILY;
     Route: 042
  7. CYCLOPHOSPHAMIDE. [Suspect]
     Active Substance: CYCLOPHOSPHAMIDE
     Indication: PINEALOBLASTOMA
     Dosage: 2120 MILLIGRAM DAILY;
     Route: 042

REACTIONS (1)
  - Febrile neutropenia [Recovering/Resolving]
